FAERS Safety Report 7952058-0 (Version None)
Quarter: 2011Q4

REPORT INFORMATION
  Report Type: 
  Country: None (occurrence: None)
  Receive Date: 20111201
  Receipt Date: 20111122
  Transmission Date: 20120403
  Serious: Yes (Hospitalization, Other)
  Sender: FDA-Public Use
  Company Number: US-BAYER-2011-070483

PATIENT
  Age: 23 Year
  Sex: Female
  Weight: 74.83 kg

DRUGS (6)
  1. INVEGA [Concomitant]
     Dosage: 3 MG, TWICE A WEEK
     Route: 048
     Dates: start: 20090930
  2. MEDROL [Concomitant]
     Indication: PLANTAR FASCIITIS
     Dosage: UNK
     Dates: start: 20090901
  3. DROSPIRENONE AND ETHINYL ESTRADIOL [Suspect]
     Indication: ORAL CONTRACEPTION
  4. DROSPIRENONE AND ETHINYL ESTRADIOL [Suspect]
     Indication: PREMENSTRUAL SYNDROME
  5. ADDERALL 5 [Concomitant]
     Indication: ATTENTION DEFICIT/HYPERACTIVITY DISORDER
     Dosage: 10 MG, QD
     Route: 048
  6. PAXIL [Concomitant]
     Dosage: 20 MG, QD
     Route: 048
     Dates: start: 20090930

REACTIONS (6)
  - PULMONARY EMBOLISM [None]
  - EMOTIONAL DISTRESS [None]
  - INJURY [None]
  - BIPOLAR DISORDER [None]
  - PAIN [None]
  - DEEP VEIN THROMBOSIS [None]
